FAERS Safety Report 24995622 (Version 1)
Quarter: 2025Q1

REPORT INFORMATION
  Report Type: Spontaneous
  Country: US (occurrence: US)
  Receive Date: 20250221
  Receipt Date: 20250221
  Transmission Date: 20250408
  Serious: Yes (Hospitalization)
  Sender: SANOFI AVENTIS
  Company Number: US-SA-2025SA051384

PATIENT
  Age: 21 Year
  Sex: Male

DRUGS (6)
  1. ALPROLIX [Suspect]
     Active Substance: EFTRENONACOG ALFA
     Indication: Factor IX deficiency
     Dosage: 500 UNIT: ALPROLIX 562 UNITS/VIAL, 2 VIALS. INFUSE ONE 2215
     Route: 042
     Dates: start: 20240614
  2. ALPROLIX [Suspect]
     Active Substance: EFTRENONACOG ALFA
     Indication: Factor IX deficiency
     Dosage: 500 UNIT: ALPROLIX 562 UNITS/VIAL, 2 VIALS. INFUSE ONE 2215
     Route: 042
     Dates: start: 20240614
  3. ALPROLIX [Suspect]
     Active Substance: EFTRENONACOG ALFA
     Indication: Prophylaxis
     Route: 042
     Dates: start: 20240614
  4. ALPROLIX [Suspect]
     Active Substance: EFTRENONACOG ALFA
     Indication: Prophylaxis
     Route: 042
     Dates: start: 20240614
  5. CHLORHEXIDINE GLUCONATE [Concomitant]
     Active Substance: CHLORHEXIDINE GLUCONATE
  6. ONDANSETRON [Concomitant]
     Active Substance: ONDANSETRON

REACTIONS (6)
  - Fall [Unknown]
  - Face injury [Unknown]
  - Mouth haemorrhage [Unknown]
  - Epistaxis [Unknown]
  - Walking aid user [Unknown]
  - Pain [Unknown]

NARRATIVE: CASE EVENT DATE: 20250211
